FAERS Safety Report 4382945-4 (Version None)
Quarter: 2004Q2

REPORT INFORMATION
  Report Type: 
  Country: None (occurrence: None)
  Receive Date: 20040622
  Receipt Date: 20040610
  Transmission Date: 20050107
  Serious: Yes (Life-Threatening, Hospitalization, Disabling, Other)
  Sender: FDA-Public Use
  Company Number: US-MERCK-0406USA01297

PATIENT
  Age: 53 Year
  Sex: Female
  Weight: 83 kg

DRUGS (5)
  1. ALBUTEROL [Concomitant]
     Route: 048
  2. ALBUTEROL AND IPRATROPIUM BROMIDE [Concomitant]
     Route: 055
  3. ADVAIR DISKUS 100/50 [Concomitant]
     Route: 055
  4. SINGULAIR [Suspect]
     Indication: ASTHMA
     Route: 048
     Dates: start: 20040506, end: 20040601
  5. SINGULAIR [Suspect]
     Indication: RHINITIS
     Route: 048
     Dates: start: 20040506, end: 20040601

REACTIONS (4)
  - DRUG HYPERSENSITIVITY [None]
  - EPISTAXIS [None]
  - HEADACHE [None]
  - OEDEMA PERIPHERAL [None]
